FAERS Safety Report 15316511 (Version 1)
Quarter: 2018Q3

REPORT INFORMATION
  Report Type: Report from Study
  Country: PY (occurrence: PY)
  Receive Date: 20180824
  Receipt Date: 20180824
  Transmission Date: 20181010
  Serious: Yes (Death)
  Sender: FDA-Public Use
  Company Number: PY-SAKK-2018SA229343AA

PATIENT
  Age: 80 Year
  Sex: Female

DRUGS (1)
  1. INSULIN GLARGINE [Suspect]
     Active Substance: INSULIN GLARGINE
     Indication: DIABETES MELLITUS
     Dosage: 10 IU, QD
     Route: 058
     Dates: start: 20180516

REACTIONS (4)
  - Cardiovascular disorder [Unknown]
  - Gait disturbance [Unknown]
  - Cardiac arrest [Fatal]
  - Dysuria [Unknown]

NARRATIVE: CASE EVENT DATE: 20180527
